FAERS Safety Report 24035440 (Version 2)
Quarter: 2024Q4

REPORT INFORMATION
  Report Type: Spontaneous
  Country: US (occurrence: US)
  Receive Date: 20240701
  Receipt Date: 20241015
  Transmission Date: 20250115
  Serious: No
  Sender: PFIZER
  Company Number: US-PFIZER INC-202400203280

PATIENT
  Age: 61 Year
  Sex: Female

DRUGS (2)
  1. IBRANCE [Suspect]
     Active Substance: PALBOCICLIB
     Dosage: 125 MG BY MOUTH ONCE DAILY FOR 21 DAYS, FOLLOWED BY 7 DAYS OFF, THEN REPEAT
     Route: 048
     Dates: start: 20231016
  2. IBRANCE [Suspect]
     Active Substance: PALBOCICLIB
     Dosage: 125 MG, CYCLIC (ONCE DAILY FOR 21 DAYS FOLLOWED BY 7 DAYS OFF)

REACTIONS (6)
  - Fatigue [Unknown]
  - Abdominal discomfort [Unknown]
  - Diarrhoea [Unknown]
  - Abdominal distension [Unknown]
  - Dysgeusia [Unknown]
  - Bone pain [Not Recovered/Not Resolved]

NARRATIVE: CASE EVENT DATE: 20240923
